FAERS Safety Report 14185281 (Version 1)
Quarter: 2017Q4

REPORT INFORMATION
  Report Type: Spontaneous
  Country: GB (occurrence: GB)
  Receive Date: 20171113
  Receipt Date: 20171113
  Transmission Date: 20180321
  Serious: Yes (Other)
  Sender: FDA-Public Use
  Company Number: GB-MYLANLABS-2017M1052639

PATIENT
  Sex: Male

DRUGS (2)
  1. CLOZARIL [Suspect]
     Active Substance: CLOZAPINE
     Indication: SCHIZOPHRENIA
     Dosage: UNK
     Route: 048
     Dates: start: 20130930
  2. CLOZARIL [Suspect]
     Active Substance: CLOZAPINE
     Dosage: 750 MG, UNK
     Route: 048

REACTIONS (4)
  - Antipsychotic drug level increased [Recovering/Resolving]
  - Sedation complication [Unknown]
  - Electrocardiogram QT prolonged [Unknown]
  - Somnolence [Unknown]
